FAERS Safety Report 15797113 (Version 1)
Quarter: 2019Q1

REPORT INFORMATION
  Report Type: Spontaneous
  Country: US (occurrence: US)
  Receive Date: 20190107
  Receipt Date: 20190107
  Transmission Date: 20190417
  Serious: Yes (Other)
  Sender: FDA-Public Use
  Company Number: None

PATIENT
  Age: 71 Year
  Sex: Female
  Weight: 95.85 kg

DRUGS (9)
  1. DEXILANT [Concomitant]
     Active Substance: DEXLANSOPRAZOLE
  2. VITAMIN D3 [Concomitant]
     Active Substance: CHOLECALCIFEROL
  3. LOSARTAN. [Concomitant]
     Active Substance: LOSARTAN
  4. VITAMIN B12 [Concomitant]
     Active Substance: CYANOCOBALAMIN
  5. SYNTHROID [Concomitant]
     Active Substance: LEVOTHYROXINE SODIUM
  6. TAKEDA [Concomitant]
  7. AMLODIPINE BESYLATE 10MG TABLETS [Suspect]
     Active Substance: AMLODIPINE BESYLATE
     Indication: HYPERTENSION
     Dosage: ?          QUANTITY:90 TABLET(S);?
     Route: 048
     Dates: start: 20181218, end: 20181226
  8. AMLODIPINE BESYLATE 10MG TABLETS [Suspect]
     Active Substance: AMLODIPINE BESYLATE
     Indication: HYPERTENSION
     Dosage: ?          QUANTITY:80 TABLET(S);?
     Route: 048
     Dates: start: 20180711, end: 20181216
  9. OMRON EVOLV [Concomitant]

REACTIONS (7)
  - Syncope [None]
  - Myalgia [None]
  - Dizziness [None]
  - Arthralgia [None]
  - Pain [None]
  - Dyspnoea [None]
  - Vision blurred [None]

NARRATIVE: CASE EVENT DATE: 20181226
